FAERS Safety Report 14282497 (Version 1)
Quarter: 2017Q4

REPORT INFORMATION
  Report Type: Spontaneous
  Country: US (occurrence: US)
  Receive Date: 20171213
  Receipt Date: 20171213
  Transmission Date: 20180321
  Serious: No
  Sender: FDA-Public Use
  Company Number: US-MALLINCKRODT-T201700892

PATIENT
  Age: 56 Year
  Sex: Female
  Weight: 95 kg

DRUGS (11)
  1. FENTANYL TRANSDERMAL SYSTEM [Suspect]
     Active Substance: FENTANYL
     Dosage: 2 X 25 MCG/HR, Q72HR
     Route: 062
  2. FENTANYL TRANSDERMAL SYSTEM [Suspect]
     Active Substance: FENTANYL
     Dosage: 25 MCG/HR AND 12 MCG/HR, Q72HR
     Route: 062
  3. ULTRAM [Concomitant]
     Active Substance: TRAMADOL HYDROCHLORIDE
     Route: 065
  4. FENTANYL TRANSDERMAL SYSTEM [Suspect]
     Active Substance: FENTANYL
     Indication: BACK INJURY
     Dosage: 25 MCG/HR, Q72HR
     Route: 062
     Dates: start: 201601, end: 2016
  5. SPIRONOLACTONE. [Concomitant]
     Active Substance: SPIRONOLACTONE
     Route: 065
  6. OMEPRAZOLE. [Concomitant]
     Active Substance: OMEPRAZOLE
     Route: 065
  7. FLEXERIL [Concomitant]
     Active Substance: CYCLOBENZAPRINE HYDROCHLORIDE
     Route: 065
  8. STOOL SOFTENER (DOCUSATE) [Concomitant]
     Active Substance: DOCUSATE
     Route: 065
  9. GLIPIZIDE. [Concomitant]
     Active Substance: GLIPIZIDE
     Route: 065
  10. SYNTHROID [Concomitant]
     Active Substance: LEVOTHYROXINE SODIUM
     Route: 065
  11. ZYRTEC [Concomitant]
     Active Substance: CETIRIZINE HYDROCHLORIDE
     Route: 065

REACTIONS (7)
  - Drug ineffective [Recovered/Resolved]
  - Application site erythema [Not Recovered/Not Resolved]
  - Drug effect increased [Recovered/Resolved]
  - Application site laceration [Not Recovered/Not Resolved]
  - Product quality issue [Unknown]
  - Application site pallor [Unknown]
  - Application site haemorrhage [Unknown]

NARRATIVE: CASE EVENT DATE: 201702
